FAERS Safety Report 17699357 (Version 3)
Quarter: 2020Q2

REPORT INFORMATION
  Report Type: Spontaneous
  Country: US (occurrence: US)
  Receive Date: 20200423
  Receipt Date: 20200630
  Transmission Date: 20200714
  Serious: Yes (Life-Threatening, Hospitalization, Other)
  Sender: FDA-Public Use
  Company Number: US-HIKMA PHARMACEUTICALS USA INC.-US-H14001-20-01930

PATIENT
  Age: 2 Year
  Sex: Male

DRUGS (4)
  1. CRIZOTINIB [Suspect]
     Active Substance: CRIZOTINIB
     Indication: NEUROBLASTOMA
     Route: 048
     Dates: start: 20200309, end: 20200323
  2. VP-16 [Suspect]
     Active Substance: ETOPOSIDE
     Indication: NEUROBLASTOMA
     Dosage: 112 MG EVERY 24 HOURS AT 127.8 ML/HR OVER 2 HOURS ON DAYS 1-3; ETOPOSIDE 112 MG IN SODIUM CHLORIDE 0
     Route: 042
     Dates: start: 20200309, end: 20200311
  3. CISPLATIN. [Suspect]
     Active Substance: CISPLATIN
     Indication: NEUROBLASTOMA
     Dosage: 34 MG EVERY 24 HOURS AT 78 ML/HR OVER 4 HOURS ON DAYS 1- 3, CISPLATIN 34 MG, MANNITOL 20% 5.6 G IN S
     Route: 042
     Dates: start: 20200310, end: 20200312
  4. NEULASTA [Suspect]
     Active Substance: PEGFILGRASTIM
     Indication: NEUROBLASTOMA
     Route: 058
     Dates: start: 20200313, end: 20200313

REACTIONS (11)
  - Febrile neutropenia [Unknown]
  - Hypoxia [Unknown]
  - Hyporesponsive to stimuli [Unknown]
  - Dehydration [Unknown]
  - Clostridium difficile colitis [Recovered/Resolved]
  - Depressed level of consciousness [Recovered/Resolved with Sequelae]
  - Neutropenic sepsis [Unknown]
  - Hypotension [Unknown]
  - Hypokalaemia [Recovered/Resolved]
  - Bradypnoea [Unknown]
  - Electrolyte imbalance [Unknown]

NARRATIVE: CASE EVENT DATE: 20200316
